FAERS Safety Report 7442211-7 (Version None)
Quarter: 2011Q2

REPORT INFORMATION
  Report Type: 
  Country: None (occurrence: None)
  Receive Date: 20110428
  Receipt Date: 20110415
  Transmission Date: 20111010
  Serious: Yes (Other)
  Sender: FDA-Public Use
  Company Number: US-ELI_LILLY_AND_COMPANY-US201008005819

PATIENT
  Sex: Female

DRUGS (12)
  1. FORTEO [Suspect]
     Dosage: 20 UG, QD
  2. METOPROLOL [Concomitant]
     Indication: BLOOD PRESSURE
  3. FORTEO [Suspect]
     Indication: OSTEOPOROSIS
     Dosage: 20 UG, DAILY (1/D)
     Dates: start: 20100801
  4. FORTEO [Suspect]
     Dosage: 20 UG, DAILY (1/D)
  5. NAMENDA [Concomitant]
  6. FORTEO [Suspect]
     Dosage: 20 UG, DAILY (1/D)
     Route: 065
  7. MIRTAZAPINE [Concomitant]
  8. FORTEO [Suspect]
     Dosage: 20 UG, DAILY (1/D)
  9. EVISTA [Suspect]
     Indication: OSTEOPOROSIS
     Dosage: 60 MG, DAILY (1/D)
  10. FORTEO [Suspect]
     Dosage: 20 UG, DAILY (1/D)
  11. FORTEO [Suspect]
     Dosage: 20 UG, DAILY (1/D)
  12. SPIRONOLACTONE W/ HYDROCHLOROTHIAZIDE [Concomitant]
     Indication: BLOOD PRESSURE

REACTIONS (14)
  - HYPOAESTHESIA [None]
  - TREMOR [None]
  - INJECTION SITE PRURITUS [None]
  - INJECTION SITE PAIN [None]
  - DYSSTASIA [None]
  - INJECTION SITE ERYTHEMA [None]
  - DRUG INEFFECTIVE [None]
  - INSOMNIA [None]
  - GAIT DISTURBANCE [None]
  - INJECTION SITE HAEMATOMA [None]
  - ASTHENIA [None]
  - HYDROCEPHALUS [None]
  - INJECTION SITE STREAKING [None]
  - DIZZINESS [None]
